FAERS Safety Report 17606756 (Version 2)
Quarter: 2021Q2

REPORT INFORMATION
  Report Type: Report from Study
  Country: US (occurrence: US)
  Receive Date: 20200331
  Receipt Date: 20210528
  Transmission Date: 20210716
  Serious: Yes (Hospitalization, Other)
  Sender: FDA-Public Use
  Company Number: US-BAYER-2020-035360

PATIENT
  Age: 63 Year
  Sex: Male

DRUGS (3)
  1. NEXAVAR [Suspect]
     Active Substance: SORAFENIB
     Indication: HEPATOCELLULAR CARCINOMA
     Dosage: 200 MG DAILY OR TWICE A DAYAS TOLERATES
     Route: 048
     Dates: start: 202002
  2. NEXAVAR [Suspect]
     Active Substance: SORAFENIB
     Indication: HEPATOCELLULAR CARCINOMA
     Dosage: 400 MG, BID
     Route: 048
  3. NEXAVAR [Suspect]
     Active Substance: SORAFENIB
     Indication: HEPATOCELLULAR CARCINOMA
     Dosage: 400 MG, BID
     Route: 048
     Dates: start: 20200131

REACTIONS (20)
  - Nausea [Unknown]
  - Diarrhoea [Unknown]
  - Abdominal pain [Unknown]
  - Hypersomnia [Not Recovered/Not Resolved]
  - Haematemesis [Unknown]
  - Blister [Unknown]
  - Abdominal pain [Recovering/Resolving]
  - Renal disorder [Not Recovered/Not Resolved]
  - Abdominal rigidity [Unknown]
  - Asthenia [Unknown]
  - Cyst [Recovering/Resolving]
  - Blood potassium increased [Not Recovered/Not Resolved]
  - Vomiting [Unknown]
  - Fatigue [Unknown]
  - Blister [Recovering/Resolving]
  - Decreased appetite [Unknown]
  - Asthenia [Not Recovered/Not Resolved]
  - Product use issue [None]
  - Weight decreased [Unknown]
  - Weight decreased [Not Recovered/Not Resolved]

NARRATIVE: CASE EVENT DATE: 202002
